FAERS Safety Report 15838600 (Version 1)
Quarter: 2019Q1

REPORT INFORMATION
  Report Type: Spontaneous
  Country: GB (occurrence: GB)
  Receive Date: 20190117
  Receipt Date: 20190117
  Transmission Date: 20190417
  Serious: Yes (Hospitalization)
  Sender: FDA-Public Use
  Company Number: GB-TEVA-2019-GB-999154

PATIENT
  Age: 33 Year
  Sex: Female
  Weight: 101.6 kg

DRUGS (1)
  1. OLANZAPINE. [Suspect]
     Active Substance: OLANZAPINE
     Indication: PSYCHOTIC DISORDER
     Route: 048
     Dates: start: 2005

REACTIONS (5)
  - Chest pain [Unknown]
  - Delirium [Unknown]
  - Angina pectoris [Not Recovered/Not Resolved]
  - Myalgia [Not Recovered/Not Resolved]
  - Muscle injury [Not Recovered/Not Resolved]

NARRATIVE: CASE EVENT DATE: 2005
